FAERS Safety Report 7449584-X (Version None)
Quarter: 2011Q2

REPORT INFORMATION
  Report Type: 
  Country: None (occurrence: None)
  Receive Date: 20110502
  Receipt Date: 20110421
  Transmission Date: 20111010
  Serious: Yes (Other)
  Sender: FDA-Public Use
  Company Number: US-BAYER-2011-028746

PATIENT
  Sex: Male

DRUGS (7)
  1. NORVASC [Concomitant]
  2. NEXAVAR [Suspect]
     Indication: HEPATIC NEOPLASM MALIGNANT
     Dosage: 400 MG, BID
     Route: 048
     Dates: start: 20110301
  3. SKIN CARE [Concomitant]
     Dosage: UNK UNK, Q2HR
  4. LISINOPRIL [Concomitant]
  5. GLYBURIDE [Concomitant]
     Dosage: 5 MG, BID
  6. ARTIFICIAL TEARS [ARTIFICIAL TEARS] [Concomitant]
     Dosage: UNK UNK, BID
  7. MULTI-VITAMINS [Concomitant]

REACTIONS (13)
  - PAIN IN EXTREMITY [None]
  - BODY TEMPERATURE INCREASED [None]
  - HYPERKERATOSIS [None]
  - SKIN DISCOLOURATION [None]
  - PAIN OF SKIN [None]
  - DRY EYE [None]
  - BLISTER [None]
  - OEDEMA PERIPHERAL [None]
  - HEART RATE INCREASED [None]
  - EPISTAXIS [None]
  - SKIN EXFOLIATION [None]
  - DRY MOUTH [None]
  - FEELING COLD [None]
